FAERS Safety Report 21986152 (Version 1)
Quarter: 2023Q1

REPORT INFORMATION
  Report Type: Spontaneous
  Country: CN (occurrence: None)
  Receive Date: 20230213
  Receipt Date: 20230213
  Transmission Date: 20230417
  Serious: Yes (Other)
  Sender: FDA-Public Use
  Company Number: CN-ROCHE-3280876

PATIENT
  Age: 49 Year
  Sex: Female

DRUGS (14)
  1. TRASTUZUMAB [Suspect]
     Active Substance: TRASTUZUMAB
     Indication: Invasive ductal breast carcinoma
     Dosage: TARGETED THERAPY FOR ONE YEAR
     Route: 065
  2. TRASTUZUMAB [Suspect]
     Active Substance: TRASTUZUMAB
     Dosage: CAPECITABINE + TRASTUZUMAB + PERTUZUMAB
     Route: 065
     Dates: start: 20220426, end: 2022
  3. TRASTUZUMAB [Suspect]
     Active Substance: TRASTUZUMAB
     Dosage: PACLITAXEL FOR INJECTION (ALBUMIN BOUND) + TRASTUZUMAB + PYROTINIB
     Route: 065
     Dates: start: 20220924
  4. TRASTUZUMAB [Suspect]
     Active Substance: TRASTUZUMAB
     Dosage: VINORELBINE + TRASTUZUMAB + PYROTINIB
     Route: 065
     Dates: start: 20220903, end: 202209
  5. TRASTUZUMAB [Suspect]
     Active Substance: TRASTUZUMAB
     Dosage: THP REGIMEN FOR 4 CYCLES
     Route: 065
     Dates: start: 20220127, end: 2022
  6. PERTUZUMAB [Suspect]
     Active Substance: PERTUZUMAB
     Indication: Invasive ductal breast carcinoma
     Dosage: THP REGIMEN FOR 4 CYCLES
     Route: 065
     Dates: start: 20220127, end: 2022
  7. PERTUZUMAB [Suspect]
     Active Substance: PERTUZUMAB
     Dosage: CAPECITABINE+ TRASTUZUMAB + PERTUZUMAB
     Route: 065
     Dates: start: 20220426
  8. TAMOXIFEN [Concomitant]
     Active Substance: TAMOXIFEN
  9. PACLITAXEL [Concomitant]
     Active Substance: PACLITAXEL
     Dosage: THP REGIMEN FOR 4 CYCLES
     Dates: start: 20220127, end: 2022
  10. PACLITAXEL [Concomitant]
     Active Substance: PACLITAXEL
     Dosage: PACLITAXEL FOR INJECTION (ALBUMIN BOUND) + TRASTUZUMAB + PYROTINIB
     Dates: start: 20220924
  11. CAPECITABINE [Concomitant]
     Active Substance: CAPECITABINE
     Dosage: CAPECITABINE + TRASTUZUMAB + PERTUZUMAB
     Route: 048
     Dates: start: 20220426
  12. VINORELBINE [Concomitant]
     Active Substance: VINORELBINE TARTRATE
     Dosage: VINORELBINE + TRASTUZUMAB + PYROTINIB
     Dates: start: 20220903
  13. PYROTINIB [Concomitant]
     Active Substance: PYROTINIB
     Dosage: VINORELBINE + TRASTUZUMAB + PYROTINIB
     Dates: start: 20220903, end: 2022
  14. PYROTINIB [Concomitant]
     Active Substance: PYROTINIB
     Dosage: PACLITAXEL FOR INJECTION (ALBUMIN BOUND) + TRASTUZUMAB + PYROTINIB
     Dates: start: 20220924

REACTIONS (4)
  - Myelosuppression [Unknown]
  - Diarrhoea [Unknown]
  - Vomiting [Unknown]
  - Palmar-plantar erythrodysaesthesia syndrome [Unknown]

NARRATIVE: CASE EVENT DATE: 20220901
